FAERS Safety Report 9125936 (Version 2)
Quarter: 2014Q2

REPORT INFORMATION
  Report Type: Spontaneous
  Country: US (occurrence: US)
  Receive Date: 20130228
  Receipt Date: 20140417
  Transmission Date: 20141212
  Serious: Yes (Hospitalization, Other)
  Sender: FDA-Public Use
  Company Number: US-AMGEN-USASP2013012895

PATIENT
  Age: 67 Year
  Sex: Female

DRUGS (4)
  1. ENBREL [Suspect]
     Indication: RHEUMATOID ARTHRITIS
     Dosage: 50 MG, QWK
     Route: 058
     Dates: start: 20030101, end: 201403
  2. METHOTREXATE [Concomitant]
     Dosage: 0.8 ML, QWK
  3. PLAQUENIL                          /00072602/ [Concomitant]
     Dosage: 200 MG, BID
     Route: 048
     Dates: start: 201312
  4. ARAVA [Concomitant]
     Dosage: UNK, ONE PILL EVERY OTHER DAY
     Dates: start: 201312, end: 201401

REACTIONS (18)
  - Dyspnoea [Recovered/Resolved]
  - Chronic obstructive pulmonary disease [Not Recovered/Not Resolved]
  - Fungal infection [Unknown]
  - Back pain [Recovered/Resolved]
  - Synovial rupture [Recovered/Resolved]
  - Diarrhoea [Not Recovered/Not Resolved]
  - Protein total increased [Not Recovered/Not Resolved]
  - Joint stiffness [Recovered/Resolved]
  - Blood test abnormal [Not Recovered/Not Resolved]
  - Joint swelling [Not Recovered/Not Resolved]
  - Alopecia [Not Recovered/Not Resolved]
  - Muscular weakness [Not Recovered/Not Resolved]
  - Tooth abscess [Unknown]
  - Anaemia [Not Recovered/Not Resolved]
  - Infectious mononucleosis [Unknown]
  - Influenza [Recovered/Resolved]
  - Kidney infection [Recovered/Resolved]
  - Oral herpes [Unknown]
